FAERS Safety Report 7239404-0 (Version None)
Quarter: 2011Q1

REPORT INFORMATION
  Report Type: 
  Country: None (occurrence: None)
  Receive Date: 20110121
  Receipt Date: 20110110
  Transmission Date: 20110831
  Serious: Yes (Hospitalization, Other)
  Sender: FDA-Public Use
  Company Number: GB-PFIZER INC-2011006436

PATIENT
  Age: 56 Year
  Sex: Male

DRUGS (2)
  1. DERMOL SOL [Concomitant]
     Indication: DERMATITIS
     Dosage: 1 DF, 1X/DAY
     Route: 061
  2. IBUPROFEN [Suspect]
     Indication: PAIN
     Dosage: 400 MG, 3X/DAY
     Route: 048
     Dates: start: 20101214, end: 20101220

REACTIONS (4)
  - MELAENA [None]
  - DUODENAL ULCER [None]
  - UPPER GASTROINTESTINAL HAEMORRHAGE [None]
  - RECTAL HAEMORRHAGE [None]
